FAERS Safety Report 6493281-4 (Version None)
Quarter: 2009Q4

REPORT INFORMATION
  Report Type: 
  Country: None (occurrence: None)
  Receive Date: 20091209
  Receipt Date: 20091203
  Transmission Date: 20100525
  Serious: Yes (Other)
  Sender: FDA-Public Use
  Company Number: FABR-1001098

PATIENT
  Age: 67 Year
  Sex: Female
  Weight: 100 kg

DRUGS (2)
  1. FABRAZYME [Suspect]
     Indication: FABRY'S DISEASE
     Dosage: 30 MG, Q2W, INTRAVENOUS; INTRAVENOUS
     Route: 042
     Dates: start: 20090901, end: 20091201
  2. FABRAZYME [Suspect]
     Indication: FABRY'S DISEASE
     Dosage: 30 MG, Q2W, INTRAVENOUS; INTRAVENOUS
     Route: 042
     Dates: start: 20050426

REACTIONS (1)
  - ANKLE OPERATION [None]
